FAERS Safety Report 19614367 (Version 1)
Quarter: 2021Q3

REPORT INFORMATION
  Report Type: Spontaneous
  Country: PT (occurrence: PT)
  Receive Date: 20210727
  Receipt Date: 20210727
  Transmission Date: 20211014
  Serious: Yes (Life-Threatening, Other)
  Sender: FDA-Public Use
  Company Number: PT-AKCEA THERAPEUTICS-2021IS001086

PATIENT
  Age: 48 Year
  Sex: Male
  Weight: 82.18 kg

DRUGS (2)
  1. TEGSEDI [Suspect]
     Active Substance: INOTERSEN SODIUM
     Indication: HEREDITARY NEUROPATHIC AMYLOIDOSIS
     Route: 058
     Dates: start: 20141125, end: 20210107
  2. ISSD (INTEGRATED SYRINGE SAFETY DEVICE) [Suspect]
     Active Substance: DEVICE

REACTIONS (6)
  - Tubulointerstitial nephritis [Unknown]
  - Ocular hyperaemia [Unknown]
  - Eye pain [Unknown]
  - Erectile dysfunction [Unknown]
  - Glomerular filtration rate decreased [Recovering/Resolving]
  - Iridocyclitis [Unknown]

NARRATIVE: CASE EVENT DATE: 202012
